FAERS Safety Report 21918483 (Version 2)
Quarter: 2023Q1

REPORT INFORMATION
  Report Type: Spontaneous
  Country: FR (occurrence: None)
  Receive Date: 20230127
  Receipt Date: 20230301
  Transmission Date: 20230417
  Serious: Yes (Other)
  Sender: FDA-Public Use
  Company Number: FR-ROCHE-3268233

PATIENT
  Sex: Female

DRUGS (6)
  1. OCREVUS [Suspect]
     Active Substance: OCRELIZUMAB
     Indication: Relapsing-remitting multiple sclerosis
     Dosage: DATE OF LAST DOSE PRIOR TO THE EVENT: 19/JUL/2022, DOSE: 600 MG; THERAPY STOP DATE: 16/JAN/2023
     Route: 042
     Dates: start: 201909
  2. LAMOTRIGINE [Concomitant]
     Active Substance: LAMOTRIGINE
  3. PREGABALIN [Concomitant]
     Active Substance: PREGABALIN
  4. SERTRALINE [Concomitant]
     Active Substance: SERTRALINE HYDROCHLORIDE
  5. TRAMADOL [Concomitant]
     Active Substance: TRAMADOL
  6. ZOPICLONE [Concomitant]
     Active Substance: ZOPICLONE

REACTIONS (1)
  - Cerebrovascular accident [Recovered/Resolved with Sequelae]
